FAERS Safety Report 9124800 (Version 1)
Quarter: 2013Q1

REPORT INFORMATION
  Report Type: Spontaneous
  Country: FR (occurrence: FR)
  Receive Date: 20130227
  Receipt Date: 20130227
  Transmission Date: 20140127
  Serious: Yes (Death, Hospitalization)
  Sender: FDA-Public Use
  Company Number: FR-B.I. PHARMACEUTICALS,INC./RIDGEFIELD-2013-FF-00563FF

PATIENT
  Age: 78 Year
  Sex: Female

DRUGS (6)
  1. CATAPRESSAN [Suspect]
     Dosage: 0.15 MG
     Route: 048
     Dates: end: 20121109
  2. JANUVIA [Suspect]
     Dosage: 100 MG
     Route: 048
     Dates: start: 2010, end: 20121109
  3. LISINOPRIL + HYDROCHLOROTHIAZIDE [Suspect]
     Dosage: 20MG/12.5MG X1 DAILY
     Route: 048
     Dates: end: 20121109
  4. GLICLAZIDE [Suspect]
     Dosage: 90 MG
     Route: 048
     Dates: end: 20121109
  5. ZOLPIDEM [Suspect]
     Dosage: 10 MG
     Route: 048
     Dates: end: 20121109
  6. BROMAZEPAM [Suspect]
     Dosage: NO POSOLOGY REPORTED, TAKEN IF NEEDED
     Route: 048
     Dates: end: 20121109

REACTIONS (1)
  - Pancreatitis acute [Fatal]
